FAERS Safety Report 16754791 (Version 1)
Quarter: 2019Q4

REPORT INFORMATION
  Report Type: Spontaneous
  Country: US (occurrence: US)
  Receive Date: 20190828
  Receipt Date: 20190828
  Transmission Date: 20200122
  Serious: Yes (Life-Threatening, Disabling, Other)
  Sender: FDA-Public Use
  Company Number: None

PATIENT
  Age: 48 Year
  Sex: Female
  Weight: 75.6 kg

DRUGS (6)
  1. OXYCODONE [Suspect]
     Active Substance: OXYCODONE
     Indication: NEUROPATHY PERIPHERAL
  2. OXYCODONE [Suspect]
     Active Substance: OXYCODONE
     Indication: LYMPHOEDEMA
  3. OXYCODONE [Suspect]
     Active Substance: OXYCODONE
     Indication: FIBROMYALGIA
  4. OXYCODONE [Suspect]
     Active Substance: OXYCODONE
     Indication: NEOPLASM MALIGNANT
  5. FENTANYL. [Suspect]
     Active Substance: FENTANYL
  6. OXYCODONE [Suspect]
     Active Substance: OXYCODONE
     Indication: SURGERY

REACTIONS (8)
  - Suicidal ideation [None]
  - Mastectomy [None]
  - Lymphoedema [None]
  - Breast cancer [None]
  - Postmastectomy lymphoedema syndrome [None]
  - Bone pain [None]
  - Neuropathy peripheral [None]
  - Inadequate analgesia [None]

NARRATIVE: CASE EVENT DATE: 20170101
